FAERS Safety Report 6410876-4 (Version None)
Quarter: 2009Q4

REPORT INFORMATION
  Report Type: 
  Country: None (occurrence: None)
  Receive Date: 20091022
  Receipt Date: 20091013
  Transmission Date: 20100525
  Serious: Yes (Hospitalization)
  Sender: FDA-Public Use
  Company Number: PHHY2009FR44282

PATIENT
  Sex: Male

DRUGS (7)
  1. STALEVO 100 [Suspect]
     Indication: PARKINSON'S DISEASE
     Dosage: UNK
     Dates: start: 20090201, end: 20090501
  2. CARDENSIEL [Concomitant]
     Dosage: 1.25 MG, QD
  3. KARDEGIC [Concomitant]
     Dosage: 75 MG, UNK
  4. SERETIDE [Concomitant]
     Indication: CHRONIC OBSTRUCTIVE PULMONARY DISEASE
     Dosage: 1 DF, BID
  5. INIPOMP [Concomitant]
     Dosage: 20 MG, QD
  6. FINASTERIDE [Concomitant]
  7. PARACETAMOL [Concomitant]
     Indication: OSTEOARTHRITIS

REACTIONS (6)
  - ALTERED STATE OF CONSCIOUSNESS [None]
  - CEREBRAL DISORDER [None]
  - CONFUSIONAL STATE [None]
  - DISORIENTATION [None]
  - HALLUCINATION [None]
  - URINARY TRACT INFECTION [None]
